FAERS Safety Report 9611538 (Version 1)
Quarter: 2013Q4

REPORT INFORMATION
  Report Type: Spontaneous
  Country: US (occurrence: US)
  Receive Date: 20131010
  Receipt Date: 20131010
  Transmission Date: 20140711
  Serious: Yes (Other)
  Sender: FDA-Public Use
  Company Number: US-ACCORD-019819

PATIENT
  Age: 22 Year
  Sex: Female

DRUGS (9)
  1. TACROLIMUS [Suspect]
     Indication: LUPUS NEPHRITIS
     Dosage: 2 MG QAM/ 3 MG QPM
  2. MYCOPHENOLATE MOFETIL [Suspect]
     Indication: LUPUS NEPHRITIS
  3. HYDROXYCHLOROQUINE [Suspect]
     Indication: LUPUS NEPHRITIS
  4. SOLUMEDROL [Suspect]
     Indication: LUPUS NEPHRITIS
  5. MICARDIS [Concomitant]
  6. METOPROLOL [Concomitant]
  7. AMLODIPINE [Concomitant]
  8. FUROSEMIDE [Concomitant]
  9. METHYLPREDNISOLONE [Concomitant]
     Indication: LUPUS NEPHRITIS

REACTIONS (4)
  - Oral candidiasis [Unknown]
  - Hyperglycaemia [Unknown]
  - Off label use [Unknown]
  - Treatment failure [Unknown]
